FAERS Safety Report 4357316-7 (Version None)
Quarter: 2004Q2

REPORT INFORMATION
  Report Type: 
  Country: None (occurrence: None)
  Receive Date: 20040512
  Receipt Date: 20040512
  Transmission Date: 20050107
  Serious: Yes (Other)
  Sender: FDA-Public Use
  Company Number: None

PATIENT
  Age: 72 Year
  Sex: Female
  Weight: 58.9676 kg

DRUGS (4)
  1. COREG [Suspect]
     Indication: CARDIAC DISORDER
     Dosage: ONE TAB TWICE A DAY 3.125MG
     Dates: start: 20040317, end: 20040321
  2. COUMADIN [Concomitant]
  3. VASOTEC [Concomitant]
  4. ASPIRIN [Concomitant]

REACTIONS (2)
  - CEREBROVASCULAR ACCIDENT [None]
  - MEDICAL DEVICE COMPLICATION [None]
